FAERS Safety Report 8375563-4 (Version None)
Quarter: 2012Q1

REPORT INFORMATION
  Report Type: 
  Country: None (occurrence: None)
  Receive Date: 20120323
  Receipt Date: 20110322
  Transmission Date: 20120608
  Serious: Yes (Hospitalization)
  Sender: FDA-Public Use
  Company Number: 163-21880-11020458

PATIENT
  Age: 75 Year
  Sex: Female

DRUGS (6)
  1. LASIX [Concomitant]
  2. BYSTOLIC [Concomitant]
  3. METOLAZONE [Concomitant]
  4. REVLIMID [Suspect]
     Indication: MULTIPLE MYELOMA
     Dosage: 25 MG, DAYS 1-21, THEN 7 DAYS OFF, PO
     Route: 048
     Dates: start: 20101110
  5. SYNTHROID [Concomitant]
  6. ALLOPURINOL [Concomitant]

REACTIONS (1)
  - LOCALISED INFECTION [None]
